FAERS Safety Report 26132691 (Version 1)
Quarter: 2025Q4

REPORT INFORMATION
  Report Type: Spontaneous
  Country: CN (occurrence: CN)
  Receive Date: 20251208
  Receipt Date: 20251208
  Transmission Date: 20260117
  Serious: Yes (Hospitalization)
  Sender: DIZAL (JIANGSU) PHARMACEUTICAL CO., LTD.
  Company Number: CN-Dizal (Jiangsu) Pharmaceutical Co., Ltd.-2190139

PATIENT
  Age: 75 Year
  Sex: Female
  Weight: 56 kg

DRUGS (2)
  1. SUNVOZERTINIB [Suspect]
     Active Substance: SUNVOZERTINIB
     Indication: Lung adenocarcinoma
     Dates: start: 20251015, end: 20251101
  2. SUNVOZERTINIB [Suspect]
     Active Substance: SUNVOZERTINIB
     Indication: Metastases to pleura

REACTIONS (4)
  - Pain [Recovering/Resolving]
  - Mouth ulceration [Recovering/Resolving]
  - Diarrhoea [Recovering/Resolving]
  - Asthenia [Recovering/Resolving]

NARRATIVE: CASE EVENT DATE: 20251020
